FAERS Safety Report 9214190 (Version 2)
Quarter: 2013Q4

REPORT INFORMATION
  Report Type: Spontaneous
  Country: US (occurrence: US)
  Receive Date: 20130405
  Receipt Date: 20131107
  Transmission Date: 20140711
  Serious: Yes (Hospitalization, Other)
  Sender: FDA-Public Use
  Company Number: US-BAYER-2013-040413

PATIENT
  Age: 30 Year
  Sex: Female

DRUGS (5)
  1. YAZ [Suspect]
     Dosage: UNK
  2. HYDROCODONE [Concomitant]
  3. OMEPRAZOLE [Concomitant]
  4. CIPROFLOXACIN [Concomitant]
  5. PEPTO BISMOL [Concomitant]

REACTIONS (3)
  - Gallbladder disorder [None]
  - Cholecystitis chronic [None]
  - Injury [None]
